FAERS Safety Report 16540729 (Version 1)
Quarter: 2019Q3

REPORT INFORMATION
  Report Type: Spontaneous
  Country: AU (occurrence: AU)
  Receive Date: 20190708
  Receipt Date: 20190708
  Transmission Date: 20191004
  Serious: Yes (Hospitalization)
  Sender: FDA-Public Use
  Company Number: AU-MYLANLABS-2016M1054816

PATIENT
  Sex: Male

DRUGS (4)
  1. CLOZARIL [Suspect]
     Active Substance: CLOZAPINE
     Dosage: 50 MILLIGRAM
     Route: 048
     Dates: start: 20030714
  2. CLOZARIL [Suspect]
     Active Substance: CLOZAPINE
     Dosage: UNK
     Route: 048
     Dates: start: 20190626
  3. CLOZARIL [Suspect]
     Active Substance: CLOZAPINE
     Indication: SCHIZOPHRENIA
     Dosage: 550 MG, UNK
     Route: 048
     Dates: start: 20030714, end: 20161129
  4. CLOZARIL [Suspect]
     Active Substance: CLOZAPINE
     Dosage: UNK
     Route: 048
     Dates: start: 20161201, end: 20190614

REACTIONS (3)
  - Neoplasm malignant [Unknown]
  - Haemorrhage [Unknown]
  - Malaise [Not Recovered/Not Resolved]
